FAERS Safety Report 10603072 (Version 1)
Quarter: 2014Q4

REPORT INFORMATION
  Report Type: Spontaneous
  Country: US (occurrence: US)
  Receive Date: 20141124
  Receipt Date: 20141124
  Transmission Date: 20150529
  Serious: No
  Sender: FDA-Public Use
  Company Number: US-NOVEN-14US010666

PATIENT
  Age: 50 Year
  Sex: Female
  Weight: 60.77 kg

DRUGS (1)
  1. MINIVELLE [Suspect]
     Active Substance: ESTRADIOL
     Indication: HOT FLUSH
     Dosage: UNK MG, UNK
     Route: 062
     Dates: start: 20140924

REACTIONS (2)
  - Off label use [Unknown]
  - No adverse event [None]

NARRATIVE: CASE EVENT DATE: 20140924
